FAERS Safety Report 9616709 (Version 2)
Quarter: 2013Q4

REPORT INFORMATION
  Report Type: Spontaneous
  Country: US (occurrence: US)
  Receive Date: 20131011
  Receipt Date: 20131011
  Transmission Date: 20140711
  Serious: Yes (Other)
  Sender: FDA-Public Use
  Company Number: US-BAXTER-2013BAX020142

PATIENT
  Age: 36 Year
  Sex: Female

DRUGS (1)
  1. DIANEAL LOW CALCIUM [Suspect]
     Indication: PERITONEAL DIALYSIS
     Route: 033
     Dates: start: 201206

REACTIONS (4)
  - Catheter site infection [Recovered/Resolved]
  - Catheter site erythema [Unknown]
  - Catheter site related reaction [Unknown]
  - Catheter site pain [Unknown]
